FAERS Safety Report 8672566 (Version 3)
Quarter: 2013Q4

REPORT INFORMATION
  Report Type: Report from Study
  Country: JP (occurrence: JP)
  Receive Date: 20120719
  Receipt Date: 20131031
  Transmission Date: 20140711
  Serious: Yes (Hospitalization, Other)
  Sender: FDA-Public Use
  Company Number: JP-MSD-2012SP014481

PATIENT
  Age: 65 Year
  Sex: Male
  Weight: 61 kg

DRUGS (11)
  1. PEGINTERFERON ALFA-2B [Suspect]
     Indication: HEPATITIS C
     Dosage: 1.5 ?G/KG, QW
     Route: 058
     Dates: start: 20120117, end: 20120221
  2. REBETOL [Suspect]
     Dosage: 800 MG, QD
     Route: 048
     Dates: start: 20120117, end: 20120206
  3. REBETOL [Suspect]
     Dosage: 400 MG, QD
     Route: 048
     Dates: start: 20120207, end: 20120213
  4. REBETOL [Suspect]
     Dosage: 200 MG, QD
     Route: 048
     Dates: start: 20120214, end: 20120228
  5. TELAPREVIR [Concomitant]
     Indication: HEPATITIS C
     Dosage: 2250 MG, QD
     Route: 048
     Dates: start: 20120117, end: 20120228
  6. ZYLORIC [Suspect]
     Dosage: 100 MG, QD
     Route: 048
     Dates: end: 20120306
  7. MAGMITT [Concomitant]
     Indication: CONSTIPATION
     Dosage: UPDATE (06APR2012): FORMULATION: POR, FREQUENCY.
     Route: 048
     Dates: start: 20120214
  8. MYSER (DIFLUPREDNATE) [Concomitant]
     Dosage: UNK UNK, UNKNOWN
     Route: 061
     Dates: start: 20120221
  9. TALION (BEPOTASTINE BESYLATE) [Concomitant]
     Dosage: UPDATE (06APR2012): FORMULATION: POR AND INDICATION.
     Route: 048
     Dates: start: 20120221, end: 20120228
  10. XYZAL [Concomitant]
     Dosage: UPDATE (06APR2012):FORMULATION: POR, FREQUENCY AND INDICATION
     Route: 048
     Dates: start: 20120228
  11. ALLEGRA [Concomitant]
     Dosage: UPDATE (14MAY2012)
     Route: 048
     Dates: start: 20120309

REACTIONS (5)
  - Stomatitis [Not Recovered/Not Resolved]
  - Pyrexia [Not Recovered/Not Resolved]
  - Anaemia [Not Recovered/Not Resolved]
  - Rash [Recovered/Resolved with Sequelae]
  - Drug reaction with eosinophilia and systemic symptoms [Recovered/Resolved]
